FAERS Safety Report 9786006 (Version 1)
Quarter: 2013Q4

REPORT INFORMATION
  Report Type: Spontaneous
  Country: BR (occurrence: BR)
  Receive Date: 20131227
  Receipt Date: 20131227
  Transmission Date: 20140711
  Serious: Yes (Other)
  Sender: FDA-Public Use
  Company Number: BR-PFIZER INC-2013370035

PATIENT
  Age: 39 Year
  Sex: Female
  Weight: 67 kg

DRUGS (1)
  1. LYRICA [Suspect]
     Indication: SPINAL PAIN
     Dosage: 2 CAPSULES OF STRENGTH 75 MG (150 MG) DAILY
     Route: 048
     Dates: start: 2012, end: 2012

REACTIONS (1)
  - Spinal disorder [Unknown]
